FAERS Safety Report 26030575 (Version 1)
Quarter: 2025Q4

REPORT INFORMATION
  Report Type: Report from Study
  Country: AU (occurrence: AU)
  Receive Date: 20251112
  Receipt Date: 20251112
  Transmission Date: 20260117
  Serious: Yes (Death)
  Sender: TOLMAR
  Company Number: AU-Tolmar-TLM-2025-02404

PATIENT
  Sex: Male

DRUGS (2)
  1. ELIGARD [Suspect]
     Active Substance: LEUPROLIDE ACETATE
     Indication: Prostate cancer
     Dosage: 45 MG EVERY 6 MONTHS
  2. ELIGARD [Suspect]
     Active Substance: LEUPROLIDE ACETATE
     Indication: Prostate cancer
     Route: 050

REACTIONS (6)
  - Death [Fatal]
  - General physical condition abnormal [Unknown]
  - General physical health deterioration [Unknown]
  - Confusional state [Unknown]
  - Respiratory disorder [Unknown]
  - Asthenia [Unknown]
